FAERS Safety Report 5745944-3 (Version None)
Quarter: 2008Q2

REPORT INFORMATION
  Report Type: 
  Country: None (occurrence: None)
  Receive Date: 20080520
  Receipt Date: 20080502
  Transmission Date: 20081010
  Serious: Yes (Death, Other)
  Sender: FDA-Public Use
  Company Number: MSER20080010

PATIENT
  Age: 73 Year
  Sex: Male

DRUGS (13)
  1. MORPHINE SULFATE [Suspect]
     Indication: NON-SMALL CELL LUNG CANCER
     Dosage: 30 MG, 1 TAB BID, PER ORAL
     Route: 048
     Dates: start: 20020401, end: 20020414
  2. MORPHINE SULFATE [Suspect]
     Indication: NON-SMALL CELL LUNG CANCER
     Dosage: 30 MG, 1 TAB BID, PER ORAL
     Route: 048
     Dates: start: 20020415, end: 20020423
  3. DURAGESIC-100 [Suspect]
     Indication: NON-SMALL CELL LUNG CANCER
     Dosage: 25 MCG, Q 3 DAYS, TRANSDERMAL
     Route: 062
     Dates: start: 20020418, end: 20020423
  4. DURAGESIC-100 [Suspect]
     Indication: NON-SMALL CELL LUNG CANCER
     Dosage: 25 MCG, Q 3 DAYS, TRANSDERMAL
     Route: 062
     Dates: start: 20020422, end: 20020423
  5. ROXANOL-T SUSPENSION [Suspect]
     Indication: NON-SMALL CELL LUNG CANCER
     Dosage: 1 TSP DAILY, PER ORAL
     Route: 048
     Dates: start: 20020322, end: 20020327
  6. ROXANOL-T SUSPENSION [Suspect]
     Indication: NON-SMALL CELL LUNG CANCER
     Dosage: 1 TSP DAILY, PER ORAL
     Route: 048
     Dates: start: 20020415, end: 20020420
  7. LORAZEPAM [Suspect]
     Indication: NON-SMALL CELL LUNG CANCER
     Dosage: 0.5 TSP DAILY, PER ORAL
     Route: 048
     Dates: start: 20020313, end: 20020323
  8. ACETAMINOPHEN AND HYDROCODONE BITARTRATE [Suspect]
     Indication: NON-SMALL CELL LUNG CANCER
     Dosage: 8 TABS DAILY, PER ORAL
     Route: 048
     Dates: start: 20020322, end: 20020327
  9. ACETAMINOPHEN AND HYDROCODONE BITARTRATE [Suspect]
     Indication: NON-SMALL CELL LUNG CANCER
     Dosage: 8 TABS DAILY, PER ORAL
     Route: 048
     Dates: start: 20020401, end: 20020406
  10. POTASSIUM CHLORIDE [Concomitant]
  11. PROMETHAZINE [Concomitant]
  12. FUROSEMIDE [Concomitant]
  13. FUROSEMIDE [Concomitant]

REACTIONS (1)
  - COMA [None]
